FAERS Safety Report 5016002-0 (Version None)
Quarter: 2006Q2

REPORT INFORMATION
  Report Type: 
  Country: None (occurrence: None)
  Receive Date: 20060525
  Receipt Date: 20060503
  Transmission Date: 20061013
  Serious: Yes (Hospitalization)
  Sender: FDA-Public Use
  Company Number: NZ200605002227

PATIENT
  Age: 43 Year
  Sex: Female

DRUGS (3)
  1. ZYPREXA [Suspect]
     Indication: MAJOR DEPRESSION
     Dosage: 10 MG, DAILY (1/D), ORAL; 5 MG, DAILY (1/D), ORAL
     Route: 048
     Dates: start: 20040101, end: 20051101
  2. ZYPREXA [Suspect]
     Indication: MAJOR DEPRESSION
     Dosage: 10 MG, DAILY (1/D), ORAL; 5 MG, DAILY (1/D), ORAL
     Route: 048
     Dates: start: 20051101, end: 20060401
  3. FLUOXETINE [Concomitant]

REACTIONS (4)
  - CAESAREAN SECTION [None]
  - DRUG EXPOSURE DURING PREGNANCY [None]
  - DRUG EXPOSURE VIA BREAST MILK [None]
  - PLACENTA PRAEVIA HAEMORRHAGE [None]
